FAERS Safety Report 5187032-3 (Version None)
Quarter: 2006Q4

REPORT INFORMATION
  Report Type: 
  Country: None (occurrence: None)
  Receive Date: 20061214
  Receipt Date: 20061204
  Transmission Date: 20070319
  Serious: Yes (Hospitalization, Other)
  Sender: FDA-Public Use
  Company Number: 2006125807

PATIENT
  Age: 70 Year
  Sex: Male
  Weight: 90 kg

DRUGS (16)
  1. EXUBERA [Suspect]
     Indication: DIABETES MELLITUS NON-INSULIN-DEPENDENT
     Dosage: 9 MG (3 MG, 3 IN 1 D), ORAL
     Route: 048
     Dates: start: 20060601
  2. ACETYLSALICYLIC ACID SRT [Concomitant]
  3. BELOK ZOK (METOPROLOL SUCCINATE) [Concomitant]
  4. ATACAND [Concomitant]
  5. NORVASC [Concomitant]
  6. PRAVASTATIN SODIUM [Concomitant]
  7. NEXIUM [Concomitant]
  8. INSPRA [Concomitant]
  9. SIMVASTATIN [Concomitant]
  10. TOREM (TORASEMIDE) [Concomitant]
  11. CORDAREX (AMIODARONE HYDROCHLORIDE) [Concomitant]
  12. VALSARTAN [Concomitant]
  13. LANTUS [Concomitant]
  14. FRAXIPARIN (HEPARIN-FRACTION, CALCIUM SALT) [Concomitant]
  15. NOVALGIN (METAMIZOLE SODIUM) [Concomitant]
  16. CLINDAMYCIN HCL [Concomitant]

REACTIONS (7)
  - DIABETES MELLITUS INADEQUATE CONTROL [None]
  - IMPAIRED HEALING [None]
  - INCISION SITE COMPLICATION [None]
  - OSTEOMYELITIS [None]
  - PHOBIA [None]
  - STAPHYLOCOCCAL ABSCESS [None]
  - TREATMENT NONCOMPLIANCE [None]
